FAERS Safety Report 22613209 (Version 1)
Quarter: 2023Q2

REPORT INFORMATION
  Report Type: Spontaneous
  Country: DE (occurrence: DE)
  Receive Date: 20230618
  Receipt Date: 20230618
  Transmission Date: 20230721
  Serious: Yes (Life-Threatening, Hospitalization, Other)
  Sender: FDA-Public Use
  Company Number: None

PATIENT
  Age: 51 Year
  Sex: Male
  Weight: 63 kg

DRUGS (3)
  1. LUMAKRAS [Suspect]
     Active Substance: SOTORASIB
     Indication: Metastatic bronchial carcinoma
     Dosage: 960 MILLIGRAM, QD
     Route: 048
     Dates: start: 20221128
  2. METAMIZOL [Suspect]
     Active Substance: METAMIZOLE SODIUM
     Indication: Spinal pain
     Dosage: 1000 MILLIGRAM, QD
     Route: 048
     Dates: start: 202204, end: 202208
  3. METAMIZOL [Suspect]
     Active Substance: METAMIZOLE SODIUM
     Dosage: 1000 MILLIGRAM, Q6H
     Route: 048
     Dates: start: 202208, end: 20221206

REACTIONS (7)
  - Agranulocytosis [Recovered/Resolved]
  - Neutropenic infection [Recovered/Resolved]
  - Leukopenia [Recovered/Resolved]
  - Neutropenic sepsis [Recovered/Resolved]
  - Procalcitonin increased [Recovered/Resolved]
  - Neutropenic colitis [Recovered/Resolved]
  - Dyspnoea [Recovered/Resolved]

NARRATIVE: CASE EVENT DATE: 20221206
